FAERS Safety Report 8384381-2 (Version None)
Quarter: 2012Q2

REPORT INFORMATION
  Report Type: 
  Country: None (occurrence: None)
  Receive Date: 20120524
  Receipt Date: 20120517
  Transmission Date: 20120825
  Serious: Yes (Hospitalization)
  Sender: FDA-Public Use
  Company Number: US-GLAXOSMITHKLINE-A0888745A

PATIENT
  Age: 55 Year
  Sex: Female
  Weight: 136.4 kg

DRUGS (9)
  1. AVANDIA [Suspect]
     Indication: DIABETES MELLITUS
     Dosage: 4MG PER DAY
     Route: 048
     Dates: start: 20021107, end: 20100701
  2. ALBUTEROL [Concomitant]
  3. LANTUS [Concomitant]
  4. ATENOLOL [Concomitant]
  5. AMITRIPTYLINE HCL [Concomitant]
  6. FLONASE [Concomitant]
  7. VIOXX [Concomitant]
     Dates: start: 20021010
  8. PRINZIDE [Concomitant]
  9. GLUCOVANCE [Concomitant]

REACTIONS (4)
  - FALL [None]
  - MUSCULAR WEAKNESS [None]
  - ARTHRALGIA [None]
  - HYPERTENSION [None]
